FAERS Safety Report 5417026-1 (Version None)
Quarter: 2007Q3

REPORT INFORMATION
  Report Type: 
  Country: None (occurrence: None)
  Receive Date: 20070816
  Receipt Date: 20070807
  Transmission Date: 20080115
  Serious: No
  Sender: FDA-Public Use
  Company Number: US-BAXTER-2007BH006956

PATIENT

DRUGS (2)
  1. HEPARIN SODIUM [Suspect]
     Indication: ANTICOAGULANT THERAPY
     Route: 042
     Dates: start: 20070701
  2. HEPARIN SODIUM [Suspect]
     Route: 042
     Dates: start: 20070701

REACTIONS (3)
  - ACTIVATED PARTIAL THROMBOPLASTIN TIME SHORTENED [None]
  - DEVICE FAILURE [None]
  - DRUG ADMINISTRATION ERROR [None]
